FAERS Safety Report 14140742 (Version 1)
Quarter: 2017Q4

REPORT INFORMATION
  Report Type: Spontaneous
  Country: JP (occurrence: JP)
  Receive Date: 20171030
  Receipt Date: 20171030
  Transmission Date: 20180321
  Serious: Yes (Other)
  Sender: FDA-Public Use
  Company Number: JP-TEVA-2017-JP-003638J

PATIENT
  Age: 64 Year
  Sex: Female

DRUGS (3)
  1. CONSTAN 0.4MG.TABLETS [Suspect]
     Active Substance: ALPRAZOLAM
     Dosage: 1.6 MILLIGRAM DAILY;
     Route: 048
  2. CONSTAN 0.4MG.TABLETS [Suspect]
     Active Substance: ALPRAZOLAM
     Indication: DIZZINESS
     Dosage: 1.6 MILLIGRAM DAILY;
     Route: 048
  3. CONSTAN 0.4MG.TABLETS [Suspect]
     Active Substance: ALPRAZOLAM
     Indication: NOTALGIA PARAESTHETICA
     Dosage: 1.2 MILLIGRAM DAILY;
     Route: 048

REACTIONS (5)
  - Gait inability [Unknown]
  - Pain [Unknown]
  - Abdominal pain upper [Unknown]
  - Dizziness [Unknown]
  - Bedridden [Unknown]
